FAERS Safety Report 9780149 (Version 6)
Quarter: 2014Q3

REPORT INFORMATION
  Report Type: Report from Study
  Country: BR (occurrence: BR)
  Receive Date: 20131223
  Receipt Date: 20140828
  Transmission Date: 20150326
  Serious: Yes (Hospitalization, Other)
  Sender: FDA-Public Use
  Company Number: BR-ABBVIE-13P-020-1159729-00

PATIENT
  Sex: Male

DRUGS (5)
  1. DRAMAVIT [Suspect]
     Active Substance: DIMENHYDRINATE
     Indication: PRODUCT USED FOR UNKNOWN INDICATION
  2. FINASTERIDE. [Concomitant]
     Active Substance: FINASTERIDE
     Indication: ALOPECIA
     Dosage: 1 TABLET; SOME DAYS PATIENT DON^T TAKE THE TABLET
     Route: 048
     Dates: start: 2012
  3. DEPAKOTE [Suspect]
     Active Substance: DIVALPROEX SODIUM
     Indication: CONVULSION
     Dosage: 250 MG TABLET DAILY; IN THE MORNING
     Route: 048
     Dates: start: 201309
  4. DEPAKOTE ER [Suspect]
     Active Substance: DIVALPROEX SODIUM
     Indication: CONVULSION
     Dosage: 500 MG TABLET DAILY; AT NIGHT
     Route: 048
  5. DEPAKOTE [Suspect]
     Active Substance: DIVALPROEX SODIUM
     Dosage: 500 MG TABLET DAILY; IN THE MORNING
     Route: 048

REACTIONS (13)
  - Convulsion [Recovered/Resolved]
  - Drug ineffective [Unknown]
  - Limb injury [Unknown]
  - Convulsion [Unknown]
  - Influenza [Unknown]
  - Convulsion [Recovered/Resolved]
  - Insomnia [Not Recovered/Not Resolved]
  - Somnolence [Unknown]
  - Head injury [Unknown]
  - Pharyngeal inflammation [Unknown]
  - Convulsion [Recovered/Resolved]
  - Incorrect product storage [Unknown]
  - Nasopharyngitis [Unknown]

NARRATIVE: CASE EVENT DATE: 2012
